FAERS Safety Report 18040683 (Version 2)
Quarter: 2021Q2

REPORT INFORMATION
  Report Type: Spontaneous
  Country: CA (occurrence: CA)
  Receive Date: 20200717
  Receipt Date: 20210621
  Transmission Date: 20210717
  Serious: Yes (Other)
  Sender: FDA-Public Use
  Company Number: CA-ANIPHARMA-2020-CA-001352

PATIENT
  Sex: Female

DRUGS (6)
  1. TAMOXIFEN [Suspect]
     Active Substance: TAMOXIFEN
     Route: 048
  2. AROMASIN [Concomitant]
     Active Substance: EXEMESTANE
     Route: 065
  3. ARIMIDEX [Suspect]
     Active Substance: ANASTROZOLE
     Indication: BREAST CANCER
     Route: 048
  4. FULVESTRANT. [Suspect]
     Active Substance: FULVESTRANT
     Route: 030
  5. IBRANCE [Suspect]
     Active Substance: PALBOCICLIB
     Route: 048
  6. FEMARA [Suspect]
     Active Substance: LETROZOLE
     Route: 065

REACTIONS (4)
  - Metastases to thorax [Unknown]
  - Malignant neoplasm progression [Unknown]
  - Breast cancer [Unknown]
  - Thrombophlebitis [Unknown]
